FAERS Safety Report 9290032 (Version 1)
Quarter: 2012Q4

REPORT INFORMATION
  Report Type: Spontaneous
  Country: IT (occurrence: None)
  Receive Date: 20121002
  Receipt Date: 20121002
  Transmission Date: 20130627
  Serious: Yes (Hospitalization)
  Sender: FDA-Public Use
  Company Number: FK201202840

PATIENT
  Age: 57 Year
  Sex: Female

DRUGS (1)
  1. OXALIPLATIN 5MG/ML CONCENTRATE FOR SOLUTION FOR INFUSION (OXALIPLATIN) [Suspect]
     Indication: COLON CANCER
     Route: 042
     Dates: start: 20120821, end: 20120911

REACTIONS (2)
  - Sensation of heaviness [None]
  - Bronchospasm [None]
